FAERS Safety Report 6019618-8 (Version None)
Quarter: 2008Q4

REPORT INFORMATION
  Report Type: 
  Country: None (occurrence: None)
  Receive Date: 20081224
  Receipt Date: 20081215
  Transmission Date: 20090506
  Serious: No
  Sender: FDA-Public Use
  Company Number: US-ELI_LILLY_AND_COMPANY-US200812003755

PATIENT
  Sex: Female

DRUGS (9)
  1. CYMBALTA [Suspect]
     Indication: PANIC ATTACK
     Dosage: 60 MG, UNK
     Dates: start: 20080901
  2. CYMBALTA [Suspect]
     Dosage: 90 MG, UNK
     Dates: start: 20081208
  3. ABILIFY [Concomitant]
     Dosage: 5 MG, EACH MORNING
  4. BUSPAR [Concomitant]
     Dosage: 10 MG, 2/D
  5. ATIVAN [Concomitant]
     Dosage: UNK, AS NEEDED
  6. AMBIEN [Concomitant]
     Indication: INSOMNIA
     Dosage: UNK, AS NEEDED
  7. LORA TAB [Concomitant]
     Indication: ROTATOR CUFF SYNDROME
     Dosage: 7.5 MG, UNK
  8. NAPRELAN [Concomitant]
     Indication: ROTATOR CUFF SYNDROME
     Dosage: 375 MG, UNK
  9. RITALIN [Concomitant]
     Dosage: 10 MG, 3/D

REACTIONS (6)
  - ABDOMINAL PAIN [None]
  - HEADACHE [None]
  - METRORRHAGIA [None]
  - NAUSEA [None]
  - URINE COLOUR ABNORMAL [None]
  - URINE ODOUR ABNORMAL [None]
